FAERS Safety Report 10407117 (Version 9)
Quarter: 2016Q3

REPORT INFORMATION
  Report Type: Spontaneous
  Country: US (occurrence: US)
  Receive Date: 20140825
  Receipt Date: 20160901
  Transmission Date: 20161109
  Serious: Yes (Hospitalization, Other)
  Sender: FDA-Public Use
  Company Number: US-GLAXOSMITHKLINE-A1085328A

PATIENT
  Sex: Female

DRUGS (19)
  1. VENTOLIN HFA [Suspect]
     Active Substance: ALBUTEROL SULFATE
     Indication: PRODUCT USED FOR UNKNOWN INDICATION
     Dosage: UNK, U
  2. BECONASE AQ [Suspect]
     Active Substance: BECLOMETHASONE DIPROPIONATE MONOHYDRATE
     Indication: PRODUCT USED FOR UNKNOWN INDICATION
     Dosage: UNK, U
  3. ADVAIR HFA [Suspect]
     Active Substance: FLUTICASONE PROPIONATE\SALMETEROL XINAFOATE
     Indication: INTERSTITIAL LUNG DISEASE
     Dosage: 250/50 MCG. 1 PUFF TWICE A DAY.
     Dates: start: 1990
  4. ADVAIR HFA [Suspect]
     Active Substance: FLUTICASONE PROPIONATE\SALMETEROL XINAFOATE
     Indication: CHRONIC OBSTRUCTIVE PULMONARY DISEASE
  5. PRILOSEC [Concomitant]
     Active Substance: OMEPRAZOLE MAGNESIUM
  6. IRON [Concomitant]
     Active Substance: IRON
  7. CLONAZEPAM. [Concomitant]
     Active Substance: CLONAZEPAM
  8. ADVAIR HFA [Suspect]
     Active Substance: FLUTICASONE PROPIONATE\SALMETEROL XINAFOATE
     Indication: CHRONIC OBSTRUCTIVE PULMONARY DISEASE
     Dosage: UNK
  9. VENTOLIN [Concomitant]
     Active Substance: ALBUTEROL SULFATE
  10. ADVAIR HFA [Suspect]
     Active Substance: FLUTICASONE PROPIONATE\SALMETEROL XINAFOATE
     Indication: ASTHMA
  11. RESTASIS [Concomitant]
     Active Substance: CYCLOSPORINE
  12. SYNTHROID [Concomitant]
     Active Substance: LEVOTHYROXINE SODIUM
  13. URSODIOL. [Concomitant]
     Active Substance: URSODIOL
  14. ADVAIR HFA [Suspect]
     Active Substance: FLUTICASONE PROPIONATE\SALMETEROL XINAFOATE
     Indication: ASTHMA
     Dosage: 250MCG
     Dates: start: 2000
  15. DILTIAZEM. [Concomitant]
     Active Substance: DILTIAZEM
  16. CELEXA [Concomitant]
     Active Substance: CITALOPRAM HYDROBROMIDE
  17. PHENOBARBITAL. [Concomitant]
     Active Substance: PHENOBARBITAL
  18. LEVOTHYROXINE. [Concomitant]
     Active Substance: LEVOTHYROXINE
  19. ADVAIR HFA [Suspect]
     Active Substance: FLUTICASONE PROPIONATE\SALMETEROL XINAFOATE
     Indication: INTERSTITIAL LUNG DISEASE
     Dosage: UNKNOWN
     Route: 065

REACTIONS (18)
  - Hospitalisation [Unknown]
  - Dehydration [Recovered/Resolved]
  - Haemorrhoidal haemorrhage [Unknown]
  - Gastrooesophageal reflux disease [Unknown]
  - Haemorrhage [Unknown]
  - Staphylococcal infection [Unknown]
  - Immunodeficiency [Not Recovered/Not Resolved]
  - Haemorrhoids [Not Recovered/Not Resolved]
  - Diarrhoea [Recovered/Resolved]
  - Fall [Unknown]
  - Laceration [Unknown]
  - Diverticulitis [Not Recovered/Not Resolved]
  - Haematochezia [Not Recovered/Not Resolved]
  - Bladder disorder [Unknown]
  - Fatigue [Unknown]
  - Lacrimal disorder [Unknown]
  - Suture insertion [Unknown]
  - Ill-defined disorder [Not Recovered/Not Resolved]

NARRATIVE: CASE EVENT DATE: 2000
